FAERS Safety Report 21891731 (Version 3)
Quarter: 2023Q1

REPORT INFORMATION
  Report Type: Spontaneous
  Country: IT (occurrence: IT)
  Receive Date: 20230120
  Receipt Date: 20230202
  Transmission Date: 20230417
  Serious: Yes (Death, Hospitalization, Other)
  Sender: FDA-Public Use
  Company Number: IT-BAYER-2023A004568

PATIENT
  Age: 66 Year
  Sex: Male
  Weight: 80 kg

DRUGS (2)
  1. GADOBUTROL [Suspect]
     Active Substance: GADOBUTROL
     Indication: Magnetic resonance imaging heart
     Dosage: 7.5 ML, ONCE
     Route: 042
     Dates: start: 20221227, end: 20221227
  2. GADOBUTROL [Suspect]
     Active Substance: GADOBUTROL
     Indication: Magnetic resonance imaging heart
     Dosage: UNK UNK, ONCE
     Route: 040
     Dates: start: 20230112, end: 20230112

REACTIONS (5)
  - Cardiac arrest [Fatal]
  - Ventricular fibrillation [Fatal]
  - Cardiac arrest [Not Recovered/Not Resolved]
  - Malaise [None]
  - Cough [None]

NARRATIVE: CASE EVENT DATE: 20221227
